FAERS Safety Report 10233292 (Version 2)
Quarter: 2014Q4

REPORT INFORMATION
  Report Type: Spontaneous
  Country: US (occurrence: US)
  Receive Date: 20140612
  Receipt Date: 20141002
  Transmission Date: 20150528
  Serious: Yes (Other)
  Sender: FDA-Public Use
  Company Number: US-PFIZER INC-2014159413

PATIENT
  Age: 81 Year
  Sex: Female
  Weight: 61.7 kg

DRUGS (7)
  1. PREMARIN [Suspect]
     Active Substance: ESTROGENS, CONJUGATED
     Dosage: 0.3 MG, 1X/DAY
     Route: 048
     Dates: start: 2012
  2. PREMARIN [Suspect]
     Active Substance: ESTROGENS, CONJUGATED
     Indication: HYPERHIDROSIS
     Dosage: 0.325 MG, 1X/DAY
     Route: 048
  3. LISINOPRIL. [Concomitant]
     Active Substance: LISINOPRIL
     Indication: HYPERTENSION
     Dosage: 2.5 MG, 1X/DAY
  4. PREMARIN [Suspect]
     Active Substance: ESTROGENS, CONJUGATED
     Indication: HOT FLUSH
     Dosage: 0.625 MG, UNK (22 DAYS IN A MONTH)
     Route: 048
  5. PROVERA [Suspect]
     Active Substance: MEDROXYPROGESTERONE ACETATE
     Indication: HOT FLUSH
  6. PROVERA [Suspect]
     Active Substance: MEDROXYPROGESTERONE ACETATE
     Indication: HYPERHIDROSIS
  7. PROVERA [Suspect]
     Active Substance: MEDROXYPROGESTERONE ACETATE
     Indication: HORMONE REPLACEMENT THERAPY
     Dosage: 2.5 MG, UNK (10 DAYS IN A MONTH (16TH DAY OF MONTH TO 25TH DAY OF MONTH)
     Route: 048

REACTIONS (9)
  - Feeling abnormal [Unknown]
  - Drug prescribing error [Unknown]
  - Inappropriate schedule of drug administration [Unknown]
  - Postmenopausal haemorrhage [Recovering/Resolving]
  - Uterine leiomyoma [Unknown]
  - Wrong technique in drug usage process [Unknown]
  - Body height decreased [Unknown]
  - Sluggishness [Unknown]
  - Asthenia [Unknown]

NARRATIVE: CASE EVENT DATE: 2012
